FAERS Safety Report 18648119 (Version 7)
Quarter: 2021Q4

REPORT INFORMATION
  Report Type: Spontaneous
  Country: JP (occurrence: JP)
  Receive Date: 20201222
  Receipt Date: 20211126
  Transmission Date: 20220303
  Serious: Yes (Death, Hospitalization, Other)
  Sender: FDA-Public Use
  Company Number: JP-BRISTOL-MYERS SQUIBB COMPANY-BMS-2020-108654

PATIENT
  Age: 75 Year
  Sex: Female
  Weight: 36 kg

DRUGS (2)
  1. OPDIVO [Suspect]
     Active Substance: NIVOLUMAB
     Indication: Malignant melanoma
     Dosage: 80 MILLIGRAM
     Route: 041
     Dates: start: 20201007, end: 20201028
  2. YERVOY [Suspect]
     Active Substance: IPILIMUMAB
     Indication: Malignant melanoma
     Dosage: 3 MILLIGRAM/KILOGRAM
     Route: 041
     Dates: start: 20201007, end: 20201028

REACTIONS (14)
  - Septic shock [Fatal]
  - Myasthenia gravis [Not Recovered/Not Resolved]
  - Myositis [Not Recovered/Not Resolved]
  - Pneumonia aspiration [Not Recovered/Not Resolved]
  - Fatigue [Unknown]
  - Blood creatine phosphokinase increased [Not Recovered/Not Resolved]
  - Eyelid ptosis [Unknown]
  - Diplopia [Unknown]
  - Atrioventricular block complete [Recovered/Resolved]
  - Immune-mediated enterocolitis [Unknown]
  - Oedema [Unknown]
  - Diarrhoea [Recovering/Resolving]
  - Abdominal distension [Unknown]
  - Vomiting [Unknown]

NARRATIVE: CASE EVENT DATE: 20201028
